FAERS Safety Report 6707786-1 (Version None)
Quarter: 2010Q2

REPORT INFORMATION
  Report Type: 
  Country: None (occurrence: None)
  Receive Date: 20100503
  Receipt Date: 20090603
  Transmission Date: 20101027
  Serious: No
  Sender: FDA-Public Use
  Company Number: US-ASTRAZENECA-2009UW14118

PATIENT
  Sex: Female

DRUGS (4)
  1. NEXIUM [Suspect]
     Route: 048
  2. UNSPECIFIED [Interacting]
  3. LIPITOR [Concomitant]
  4. SYNTHROID [Concomitant]

REACTIONS (1)
  - DRUG INTERACTION [None]
